FAERS Safety Report 5413278-2 (Version None)
Quarter: 2007Q3

REPORT INFORMATION
  Report Type: 
  Country: None (occurrence: None)
  Receive Date: 20070716
  Receipt Date: 20070411
  Transmission Date: 20080115
  Serious: Yes (Hospitalization)
  Sender: FDA-Public Use
  Company Number: US-2007-008959

PATIENT
  Age: 37 Year
  Sex: Female
  Weight: 139 kg

DRUGS (9)
  1. YAZ [Suspect]
     Indication: ORAL CONTRACEPTION
     Dosage: 1TAB(S), 1X/DAY, ORAL
     Route: 048
     Dates: start: 20060901, end: 20070119
  2. LEVOTHYROXINE SODIUM [Concomitant]
  3. PROTONIX ^WYETH-AYERST^ (PANTOPRAZOLE SODIUM) [Concomitant]
  4. PRILOSEC [Concomitant]
  5. FLONASE [Concomitant]
  6. CELEXA [Concomitant]
  7. XANAX [Concomitant]
  8. ZANTAC 150 [Concomitant]
  9. VICODIN [Concomitant]

REACTIONS (1)
  - PULMONARY EMBOLISM [None]
